FAERS Safety Report 25085956 (Version 1)
Quarter: 2025Q1

REPORT INFORMATION
  Report Type: Spontaneous
  Country: US (occurrence: US)
  Receive Date: 20250317
  Receipt Date: 20250317
  Transmission Date: 20250408
  Serious: No
  Sender: TONIX PHARMACEUTICALS
  Company Number: US-TONIX MEDICINES, INC.-2024TNX00007

PATIENT
  Sex: Female
  Weight: 66.213 kg

DRUGS (4)
  1. TOSYMRA [Suspect]
     Active Substance: SUMATRIPTAN
     Indication: Migraine prophylaxis
     Route: 045
     Dates: start: 20240422, end: 20240422
  2. SUMATRIPTAN [Suspect]
     Active Substance: SUMATRIPTAN
     Indication: Migraine prophylaxis
  3. FLUTICASONE [Concomitant]
     Active Substance: FLUTICASONE
  4. AZELASTINE [Concomitant]
     Active Substance: AZELASTINE

REACTIONS (6)
  - Pain [Recovering/Resolving]
  - Ear discomfort [Recovering/Resolving]
  - Nasal discomfort [Recovering/Resolving]
  - Throat irritation [Recovering/Resolving]
  - Dysgeusia [Unknown]
  - Product quality issue [Unknown]

NARRATIVE: CASE EVENT DATE: 20240422
